FAERS Safety Report 9937099 (Version 1)
Quarter: 2014Q1

REPORT INFORMATION
  Report Type: Spontaneous
  Country: US (occurrence: US)
  Receive Date: 20140301
  Receipt Date: 20140301
  Transmission Date: 20141002
  Serious: Yes (Death)
  Sender: FDA-Public Use
  Company Number: US-ASTRAZENECA-2014SE14188

PATIENT
  Sex: Male

DRUGS (4)
  1. QUATIAPINE [Suspect]
     Route: 048
  2. AMITRYPTILLINE [Suspect]
     Route: 065
  3. LOXAPINE [Suspect]
     Route: 065
  4. OLANZAPINE [Suspect]
     Route: 065

REACTIONS (1)
  - Wrong patient received medication [Fatal]
